FAERS Safety Report 5279759-X (Version None)
Quarter: 2007Q1

REPORT INFORMATION
  Report Type: 
  Country: None (occurrence: None)
  Receive Date: 20061208
  Receipt Date: 20050527
  Transmission Date: 20070707
  Serious: No
  Sender: FDA-Public Use
  Company Number: 2005UW01182

PATIENT
  Age: 48 Year
  Sex: Female
  Weight: 94.3482 kg

DRUGS (5)
  1. CRESTOR [Suspect]
     Dosage: 10 MG QD PO
     Route: 048
     Dates: start: 20041004, end: 20041105
  2. LIPITOR [Suspect]
     Dosage: 10 MG QD PO
     Route: 048
     Dates: start: 19990101, end: 19990601
  3. LIPITOR [Suspect]
     Dosage: 40 MG QD PO
     Route: 048
     Dates: start: 19990601, end: 20040820
  4. IBUPROFEN [Concomitant]
  5. VIOXX [Concomitant]

REACTIONS (1)
  - FIBROMYALGIA [None]
